FAERS Safety Report 8588266-8 (Version None)
Quarter: 2012Q3

REPORT INFORMATION
  Report Type: 
  Country: None (occurrence: None)
  Receive Date: 20120731
  Receipt Date: 20120725
  Transmission Date: 20120928
  Serious: Yes (Life-Threatening, Other)
  Sender: FDA-Public Use
  Company Number: DAV-AE-MTX-12-60

PATIENT
  Sex: Female

DRUGS (1)
  1. METHOTREXATE SODIUM [Suspect]

REACTIONS (2)
  - SEPTIC SHOCK [None]
  - KLEBSIELLA BACTERAEMIA [None]
